FAERS Safety Report 9190469 (Version 1)
Quarter: 2013Q1

REPORT INFORMATION
  Report Type: Spontaneous
  Country: US (occurrence: US)
  Receive Date: 20130326
  Receipt Date: 20130326
  Transmission Date: 20140127
  Serious: Yes (Other)
  Sender: FDA-Public Use
  Company Number: US-PFIZER INC-2012293989

PATIENT
  Age: 46 Year
  Sex: Female
  Weight: 58.96 kg

DRUGS (3)
  1. MEDROL [Suspect]
     Indication: FOOD ALLERGY
     Dosage: UNK,AS NEEDED
     Dates: end: 201303
  2. BENADRYL [Suspect]
     Indication: FOOD ALLERGY
     Dosage: UNK
  3. BYSTOLIC [Concomitant]
     Indication: HYPERTENSION
     Dosage: 20 MG DAILY

REACTIONS (5)
  - Angioedema [Unknown]
  - Drug ineffective [Unknown]
  - Urticaria [Not Recovered/Not Resolved]
  - Skin disorder [Unknown]
  - Ear disorder [Not Recovered/Not Resolved]
